FAERS Safety Report 7679591-3 (Version None)
Quarter: 2011Q3

REPORT INFORMATION
  Report Type: 
  Country: None (occurrence: None)
  Receive Date: 20110812
  Receipt Date: 20110809
  Transmission Date: 20111222
  Serious: Yes (Life-Threatening, Hospitalization)
  Sender: FDA-Public Use
  Company Number: US-AMGEN-USASP2011039557

PATIENT
  Age: 29 Year
  Sex: Male
  Weight: 69 kg

DRUGS (2)
  1. WARFARIN [Concomitant]
     Indication: ANTICOAGULANT THERAPY
     Dosage: 6.5 MG, QD
     Route: 048
     Dates: start: 20110622
  2. NPLATE [Suspect]
     Indication: IDIOPATHIC THROMBOCYTOPENIC PURPURA
     Dosage: 210 A?G, QWK
     Route: 058
     Dates: start: 20110202

REACTIONS (1)
  - PULMONARY EMBOLISM [None]
